FAERS Safety Report 13664956 (Version 6)
Quarter: 2018Q2

REPORT INFORMATION
  Report Type: Report from Study
  Country: None (occurrence: US)
  Receive Date: 20170619
  Receipt Date: 20180614
  Transmission Date: 20180711
  Serious: No
  Sender: FDA-Public Use
  Company Number: US-ABBVIE-17K-163-2007779-00

PATIENT
  Sex: Female

DRUGS (2)
  1. HUMIRA [Suspect]
     Active Substance: ADALIMUMAB
     Route: 058
     Dates: start: 20170606
  2. HUMIRA [Suspect]
     Active Substance: ADALIMUMAB
     Indication: PSORIATIC ARTHROPATHY
     Route: 058
     Dates: start: 2012, end: 201703

REACTIONS (16)
  - Joint stiffness [Recovering/Resolving]
  - Swelling [Recovering/Resolving]
  - Neck pain [Unknown]
  - Sensitivity to weather change [Unknown]
  - Peripheral swelling [Recovering/Resolving]
  - Gingivitis [Recovered/Resolved]
  - Urticaria [Recovering/Resolving]
  - Gait inability [Unknown]
  - Musculoskeletal stiffness [Recovering/Resolving]
  - Psoriasis [Recovering/Resolving]
  - Mobility decreased [Recovered/Resolved]
  - Joint swelling [Recovering/Resolving]
  - Musculoskeletal pain [Recovering/Resolving]
  - Injection site reaction [Unknown]
  - Pain in extremity [Recovering/Resolving]
  - Arthralgia [Recovering/Resolving]

NARRATIVE: CASE EVENT DATE: 2017
